FAERS Safety Report 9721467 (Version 2)
Quarter: 2013Q4

REPORT INFORMATION
  Report Type: Spontaneous
  Country: IT (occurrence: IT)
  Receive Date: 20131129
  Receipt Date: 20131205
  Transmission Date: 20140711
  Serious: Yes (Other)
  Sender: FDA-Public Use
  Company Number: IT-ASTRAZENECA-2013SE86864

PATIENT
  Age: 20208 Day
  Sex: Female
  Weight: 71 kg

DRUGS (3)
  1. OMEPRAZEN [Suspect]
     Route: 048
     Dates: start: 20121114, end: 20131109
  2. CONCOR [Concomitant]
     Route: 048
     Dates: start: 2012
  3. BLOPRESID [Concomitant]
     Dosage: 32/12.5 MG, 1DF ON UNKNOWN FREQUENCY
     Route: 048
     Dates: start: 201103

REACTIONS (3)
  - Chest pain [Recovered/Resolved]
  - Dyspnoea [Recovered/Resolved]
  - Constipation [Recovered/Resolved]
